FAERS Safety Report 10453035 (Version 1)
Quarter: 2014Q3

REPORT INFORMATION
  Report Type: Spontaneous
  Country: US (occurrence: None)
  Receive Date: 20140912
  Receipt Date: 20140912
  Transmission Date: 20150326
  Serious: Yes (Other)
  Sender: FDA-Public Use
  Company Number: None

PATIENT
  Age: 44 Year
  Sex: Female
  Weight: 77.11 kg

DRUGS (1)
  1. NEXPLANON [Suspect]
     Active Substance: ETONOGESTREL
     Indication: CONTRACEPTION
     Dosage: 1 IMPLANT  3 YEARS  GIVEN INTO/UNDER THE SKIN
     Dates: start: 20140314

REACTIONS (11)
  - Vulvovaginal dryness [None]
  - Thrombosis [None]
  - Back pain [None]
  - Menorrhagia [None]
  - Muscle spasms [None]
  - Impaired work ability [None]
  - Loss of libido [None]
  - Dizziness [None]
  - Metrorrhagia [None]
  - Asthenia [None]
  - Nausea [None]

NARRATIVE: CASE EVENT DATE: 20140910
